FAERS Safety Report 8271147-7 (Version None)
Quarter: 2012Q2

REPORT INFORMATION
  Report Type: 
  Country: None (occurrence: None)
  Receive Date: 20120406
  Receipt Date: 20120327
  Transmission Date: 20120825
  Serious: Yes (Other)
  Sender: FDA-Public Use
  Company Number: 1242376

PATIENT
  Age: 57 Year
  Sex: Female

DRUGS (5)
  1. (RANIDIL) [Concomitant]
  2. DEXAMETHASONE SODIUM PHOSPHATE [Concomitant]
  3. DOCETAXEL [Suspect]
     Indication: CHEMOTHERAPY
     Dosage: 115 MG, CYCLIC, INTRAVENOUS (NOT OTHERWISE SPECIFIED)
     Route: 042
     Dates: start: 20101108, end: 20101228
  4. ZOFRAN [Concomitant]
  5. (TRIMETON /00072502/) [Concomitant]

REACTIONS (3)
  - NEUTROPENIA [None]
  - URTICARIA [None]
  - STOMATITIS [None]
